FAERS Safety Report 9722843 (Version 6)
Quarter: 2014Q2

REPORT INFORMATION
  Report Type: Spontaneous
  Country: US (occurrence: US)
  Receive Date: 20131202
  Receipt Date: 20140609
  Transmission Date: 20141212
  Serious: No
  Sender: FDA-Public Use
  Company Number: US-PFIZER INC-2013342339

PATIENT
  Sex: Female

DRUGS (1)
  1. SERTRALINE HCL [Suspect]
     Dosage: UNK

REACTIONS (7)
  - Product quality issue [Unknown]
  - Malaise [Unknown]
  - Drug intolerance [Unknown]
  - Headache [Unknown]
  - Nervousness [Unknown]
  - Nausea [Unknown]
  - Paraesthesia [Unknown]
